FAERS Safety Report 20140795 (Version 1)
Quarter: 2021Q4

REPORT INFORMATION
  Report Type: Report from Study
  Country: BR (occurrence: BR)
  Receive Date: 20211202
  Receipt Date: 20211202
  Transmission Date: 20220303
  Serious: Yes (Other)
  Sender: FDA-Public Use
  Company Number: BR-NOVARTISPH-NVSC2020BR313895

PATIENT
  Sex: Female
  Weight: 75 kg

DRUGS (6)
  1. TIMOLOL MALEATE\TRAVOPROST [Suspect]
     Active Substance: TIMOLOL MALEATE\TRAVOPROST
     Indication: Glaucoma
     Dosage: ONE DROP IN EACH EYE AT NIGHT (ABOUT SEVEN YEARS
     Route: 047
  2. LITHIUM [Concomitant]
     Active Substance: LITHIUM
     Indication: Bipolar disorder
     Dosage: ONE TABLET DAILY (BEFORE OF THE DUO TRAVATAN)
     Route: 048
  3. RIVOTRIL [Concomitant]
     Active Substance: CLONAZEPAM
     Indication: Bipolar disorder
     Dosage: UNK, QD
     Route: 048
  4. LAMOTRIGINE [Concomitant]
     Active Substance: LAMOTRIGINE
     Indication: Bipolar disorder
     Dosage: UNK, QD
     Route: 048
  5. TOPIRAMATE [Concomitant]
     Active Substance: TOPIRAMATE
     Indication: Bipolar disorder
     Dosage: ONE TABLET DAILY (BEFORE OF THE DUO TRAVATAN)
     Route: 048
  6. LANOTAN [Concomitant]
     Indication: Product used for unknown indication
     Dosage: UNK UNK, TID
     Route: 065

REACTIONS (7)
  - Drug dependence [Unknown]
  - Eye irritation [Recovered/Resolved]
  - Nephrolithiasis [Not Recovered/Not Resolved]
  - Ocular hyperaemia [Recovered/Resolved]
  - Hypersensitivity [Recovered/Resolved]
  - Product availability issue [Unknown]
  - Dysuria [Not Recovered/Not Resolved]
